FAERS Safety Report 9697149 (Version 1)
Quarter: 2013Q4

REPORT INFORMATION
  Report Type: Spontaneous
  Country: US (occurrence: US)
  Receive Date: 20131120
  Receipt Date: 20131120
  Transmission Date: 20140711
  Serious: No
  Sender: FDA-Public Use
  Company Number: US-009507513-1311USA007685

PATIENT
  Sex: Female

DRUGS (1)
  1. NEXPLANON [Suspect]
     Route: 059

REACTIONS (4)
  - Implant site bruising [Recovered/Resolved]
  - Implant site pruritus [Unknown]
  - Implant site erythema [Unknown]
  - Implant site mass [Unknown]
